FAERS Safety Report 14607496 (Version 2)
Quarter: 2018Q1

REPORT INFORMATION
  Report Type: Spontaneous
  Country: US (occurrence: US)
  Receive Date: 20180307
  Receipt Date: 20180328
  Transmission Date: 20180509
  Serious: Yes (Other)
  Sender: FDA-Public Use
  Company Number: US-ASTELLAS-2018US010731

PATIENT
  Age: 62 Year
  Sex: Male

DRUGS (2)
  1. PROGRAF [Suspect]
     Active Substance: TACROLIMUS\TACROLIMUS ANHYDROUS
     Indication: RENAL TRANSPLANT
     Dosage: 2 MG, TWICE DAILY (2MG IN MORNING AND 2 MG IN EVENING)
     Route: 048
     Dates: start: 20080614
  2. PREDNISONE. [Suspect]
     Active Substance: PREDNISONE
     Indication: PRODUCT USED FOR UNKNOWN INDICATION
     Dosage: UNK, UNKNOWN FREQ.
     Route: 065

REACTIONS (3)
  - Diabetes mellitus [Not Recovered/Not Resolved]
  - Peripheral vascular disorder [Unknown]
  - Limb injury [Recovered/Resolved]

NARRATIVE: CASE EVENT DATE: 200912
